FAERS Safety Report 8327140-9 (Version None)
Quarter: 2012Q2

REPORT INFORMATION
  Report Type: 
  Country: None (occurrence: None)
  Receive Date: 20120501
  Receipt Date: 20120424
  Transmission Date: 20120825
  Serious: Yes (Hospitalization)
  Sender: FDA-Public Use
  Company Number: CA-B.I. PHARMACEUTICALS,INC./RIDGEFIELD-2012-BP-09740BP

PATIENT
  Sex: Male

DRUGS (1)
  1. MIRAPEX [Suspect]

REACTIONS (1)
  - DEPRESSION [None]
